FAERS Safety Report 9504693 (Version 1)
Quarter: 2013Q3

REPORT INFORMATION
  Report Type: Spontaneous
  Country: US (occurrence: US)
  Receive Date: 20130906
  Receipt Date: 20130906
  Transmission Date: 20140515
  Serious: Yes (Other)
  Sender: FDA-Public Use
  Company Number: US-PURDUE-USA-2013-0105281

PATIENT
  Age: 49 Year
  Sex: Female

DRUGS (6)
  1. INTERMEZZO [Suspect]
     Indication: MIDDLE INSOMNIA
     Route: 060
  2. INTERMEZZO [Suspect]
     Indication: INSOMNIA
  3. AMBIEN [Suspect]
     Indication: MIDDLE INSOMNIA
     Dosage: H
     Route: 048
  4. CYMBALTA [Suspect]
     Indication: PRODUCT USED FOR UNKNOWN INDICATION
     Route: 048
  5. XANAX [Suspect]
     Indication: PRODUCT USED FOR UNKNOWN INDICATION
     Route: 048
  6. NEURONTIN [Suspect]
     Indication: PRODUCT USED FOR UNKNOWN INDICATION
     Route: 048

REACTIONS (1)
  - Intentional overdose [Recovered/Resolved]
